FAERS Safety Report 5083530-1 (Version None)
Quarter: 2006Q3

REPORT INFORMATION
  Report Type: 
  Country: None (occurrence: None)
  Receive Date: 20060818
  Receipt Date: 20060809
  Transmission Date: 20061208
  Serious: Yes (Hospitalization)
  Sender: FDA-Public Use
  Company Number: JP-JNJFOC-20060605450

PATIENT
  Sex: Female

DRUGS (3)
  1. MICONAZOLE [Suspect]
     Indication: ORAL CANDIDIASIS
     Route: 048
     Dates: start: 20060601, end: 20060620
  2. WARFARIN SODIUM [Interacting]
     Indication: DRUG USE FOR UNKNOWN INDICATION
     Route: 065
  3. SODIUM AZULENE SULFONATE [Concomitant]
     Route: 002
     Dates: start: 20060601, end: 20060620

REACTIONS (2)
  - DRUG INTERACTION [None]
  - HAEMORRHAGIC DIATHESIS [None]
